FAERS Safety Report 20081327 (Version 1)
Quarter: 2021Q4

REPORT INFORMATION
  Report Type: Spontaneous
  Country: US (occurrence: US)
  Receive Date: 20211117
  Receipt Date: 20211117
  Transmission Date: 20220303
  Serious: Yes (Other)
  Sender: FDA-Public Use
  Company Number: US-FRESENIUS KABI-FK202112546

PATIENT
  Age: 30 Year
  Sex: Female

DRUGS (1)
  1. MAGNESIUM SULFATE [Suspect]
     Active Substance: MAGNESIUM SULFATE
     Indication: Seizure prophylaxis
     Route: 065

REACTIONS (3)
  - Hyperkalaemia [Recovered/Resolved]
  - Hypermagnesaemia [Recovered/Resolved]
  - Exposure during pregnancy [Recovered/Resolved]
